FAERS Safety Report 6898525-2 (Version None)
Quarter: 2010Q3

REPORT INFORMATION
  Report Type: 
  Country: None (occurrence: None)
  Receive Date: 20100802
  Receipt Date: 20071031
  Transmission Date: 20110219
  Serious: Yes (Other)
  Sender: FDA-Public Use
  Company Number: US-PFIZER INC-2007091906

PATIENT
  Sex: Male
  Weight: 90.7 kg

DRUGS (2)
  1. LYRICA [Suspect]
     Indication: PAIN
     Dates: start: 20071001, end: 20071030
  2. FLEXERIL [Concomitant]

REACTIONS (5)
  - BACK PAIN [None]
  - DRUG EFFECT DECREASED [None]
  - DYSPNOEA [None]
  - JOINT SWELLING [None]
  - MUSCLE SPASMS [None]
